FAERS Safety Report 9257636 (Version 1)
Quarter: 2013Q1

REPORT INFORMATION
  Report Type: Spontaneous
  Country: US (occurrence: None)
  Receive Date: 20121212
  Receipt Date: 20121212
  Transmission Date: 20140127
  Serious: No
  Sender: FDA-Public Use
  Company Number: 1209USA005273

PATIENT
  Age: 65 Year
  Sex: Male
  Weight: 168 kg

DRUGS (3)
  1. RIBAVIRIN (RIBAVIRIN) CAPSULE [Suspect]
     Indication: HEPATITIS C
     Dates: start: 20120404
  2. VICTRELIS (BOCEPREVIR) CAPSULE [Suspect]
     Indication: HEPATITIS C
     Dates: start: 20120505
  3. PEGASYS (PEGINTERFERON ALFA-2A) [Suspect]
     Indication: HEPATITIS C
     Dates: start: 20120403

REACTIONS (7)
  - Neutrophil count decreased [None]
  - Fatigue [None]
  - Anaemia [None]
  - Balance disorder [None]
  - Myalgia [None]
  - Hypotonia [None]
  - Weight decreased [None]
